FAERS Safety Report 18476664 (Version 2)
Quarter: 2020Q4

REPORT INFORMATION
  Report Type: Spontaneous
  Country: SA (occurrence: SA)
  Receive Date: 20201107
  Receipt Date: 20201222
  Transmission Date: 20210114
  Serious: Yes (Other)
  Sender: FDA-Public Use
  Company Number: SA-SA-2020SA306862

PATIENT

DRUGS (2)
  1. HEPARIN [Suspect]
     Active Substance: HEPARIN SODIUM
     Indication: PROPHYLAXIS
     Dosage: INJECTION
     Route: 058
  2. CLEXANE [Suspect]
     Active Substance: ENOXAPARIN SODIUM
     Indication: ANTICOAGULANT THERAPY
     Route: 058

REACTIONS (11)
  - Platelet count decreased [Recovering/Resolving]
  - Skin abrasion [Recovering/Resolving]
  - Fall [Unknown]
  - Loss of consciousness [Recovering/Resolving]
  - Skin laceration [Recovering/Resolving]
  - Skin weeping [Recovering/Resolving]
  - Contusion [Recovering/Resolving]
  - Haematuria [Recovering/Resolving]
  - Coma scale abnormal [Recovering/Resolving]
  - Heparin-induced thrombocytopenia [Recovering/Resolving]
  - Abdominal wall haematoma [Recovering/Resolving]
